FAERS Safety Report 6943308-8 (Version None)
Quarter: 2010Q3

REPORT INFORMATION
  Report Type: 
  Country: None (occurrence: None)
  Receive Date: 20100823
  Receipt Date: 20100809
  Transmission Date: 20110219
  Serious: Yes (Other)
  Sender: FDA-Public Use
  Company Number: 2010SP037143

PATIENT
  Age: 26 Year
  Sex: Female

DRUGS (2)
  1. IMPLANON [Suspect]
     Indication: CONTRACEPTION
     Dosage: 1 DF; SC
     Route: 058
     Dates: start: 20100302, end: 20100714
  2. IMPLANON [Suspect]

REACTIONS (4)
  - DEVICE DISLOCATION [None]
  - DISCOMFORT [None]
  - LIMB INJURY [None]
  - LOSS OF CONSCIOUSNESS [None]
